FAERS Safety Report 15466530 (Version 2)
Quarter: 2019Q1

REPORT INFORMATION
  Report Type: Spontaneous
  Country: US (occurrence: US)
  Receive Date: 20181004
  Receipt Date: 20190211
  Transmission Date: 20190417
  Serious: Yes (Hospitalization)
  Sender: FDA-Public Use
  Company Number: US-BRISTOL-MYERS SQUIBB COMPANY-BMS-2018-089581

PATIENT
  Sex: Female
  Weight: 75.2 kg

DRUGS (1)
  1. NIVOLUMAB [Suspect]
     Active Substance: NIVOLUMAB
     Indication: PRODUCT USED FOR UNKNOWN INDICATION
     Dosage: 240 MG/KG, Q2WK
     Route: 042
     Dates: start: 20180913

REACTIONS (3)
  - Tonsillar hypertrophy [Unknown]
  - Pyrexia [Unknown]
  - Pharyngitis [Unknown]
